FAERS Safety Report 4346597-1 (Version None)
Quarter: 2004Q1

REPORT INFORMATION
  Report Type: 
  Country: None (occurrence: None)
  Receive Date: 20040319
  Receipt Date: 20031202
  Transmission Date: 20041129
  Serious: No
  Sender: FDA-Public Use
  Company Number: US-JNJFOC-20031200918

PATIENT
  Age: 27 Year
  Sex: Female
  Weight: 65.7716 kg

DRUGS (2)
  1. ORTHO EVRA [Suspect]
     Indication: CONTRACEPTION
     Dosage: 1 DOSE(S), 3 OR 4 WEEK, TRANSDERMAL
     Route: 062
     Dates: start: 20030101
  2. EXCEDRINE (EXCEDRIN) [Concomitant]

REACTIONS (2)
  - FEELING ABNORMAL [None]
  - HEADACHE [None]
